FAERS Safety Report 19800315 (Version 1)
Quarter: 2021Q3

REPORT INFORMATION
  Report Type: Spontaneous
  Country: DE (occurrence: DE)
  Receive Date: 20210907
  Receipt Date: 20210907
  Transmission Date: 20211014
  Serious: Yes (Hospitalization)
  Sender: FDA-Public Use
  Company Number: DE-ALLERGAN-2131195US

PATIENT
  Sex: Female

DRUGS (3)
  1. TORASEMID [Suspect]
     Active Substance: TORSEMIDE
     Indication: PRODUCT USED FOR UNKNOWN INDICATION
     Dosage: 5 MG, 1?0?0?0, TABLE
     Route: 065
  2. LEVOTHYROXIN?NATRIUM [Concomitant]
     Active Substance: LEVOTHYROXINE SODIUM
     Indication: PRODUCT USED FOR UNKNOWN INDICATION
     Dosage: 50 ?G, 1?0?0?0, TABLET
     Route: 065
  3. ESCITALOPRAM OXALATE ? BP [Suspect]
     Active Substance: ESCITALOPRAM OXALATE
     Indication: PRODUCT USED FOR UNKNOWN INDICATION
     Dosage: 20 MG/ML, 10?0?0?0, DROPS
     Route: 065

REACTIONS (8)
  - Polyneuropathy [Unknown]
  - Weight decreased [Unknown]
  - Alcoholic liver disease [Unknown]
  - Decreased appetite [Unknown]
  - Vomiting [Unknown]
  - Electrolyte imbalance [Unknown]
  - Dizziness [Unknown]
  - Nausea [Unknown]
